FAERS Safety Report 5918324-5 (Version None)
Quarter: 2008Q4

REPORT INFORMATION
  Report Type: 
  Country: None (occurrence: None)
  Receive Date: 20081010
  Receipt Date: 20080926
  Transmission Date: 20090506
  Serious: Yes (Death)
  Sender: FDA-Public Use
  Company Number: 230312M08USA

PATIENT
  Age: 55 Year
  Sex: Female
  Weight: 60 kg

DRUGS (9)
  1. REBIF [Suspect]
     Indication: MULTIPLE SCLEROSIS
     Dosage: 44 MCG, 3 IN 1 WEEKS, SUBCUTANEOUS
     Route: 058
     Dates: start: 20040101, end: 20080101
  2. TRAZODONE HCL [Concomitant]
  3. BACLOFEN [Concomitant]
  4. KLONOPIN [Concomitant]
  5. EFFEXOR [Concomitant]
  6. KADIAN [Concomitant]
  7. DICAL-D (CALCIFEROL CO) [Concomitant]
  8. KLOR-CON 8 (POTASSIUM CHLORIDE) [Concomitant]
  9. GABAPENTIN [Concomitant]

REACTIONS (6)
  - ANOREXIA [None]
  - BEDRIDDEN [None]
  - CARDIAC FAILURE [None]
  - CONDITION AGGRAVATED [None]
  - FATIGUE [None]
  - MULTIPLE SCLEROSIS [None]
